FAERS Safety Report 18989498 (Version 1)
Quarter: 2021Q1

REPORT INFORMATION
  Report Type: Spontaneous
  Country: IT (occurrence: IT)
  Receive Date: 20210310
  Receipt Date: 20210310
  Transmission Date: 20210420
  Serious: Yes (Other)
  Sender: FDA-Public Use
  Company Number: IT-MACLEODS PHARMACEUTICALS US LTD-MAC2021030401

PATIENT

DRUGS (2)
  1. CLOBETASOL [Suspect]
     Active Substance: CLOBETASOL
     Indication: SKIN PLAQUE
  2. CLOBETASOL [Suspect]
     Active Substance: CLOBETASOL
     Indication: BREAST MASS
     Dosage: UNK UNK, BID, 12 HRS SOLUTION
     Route: 061

REACTIONS (3)
  - Dermatosis [Recovered/Resolved]
  - Rash papular [Recovered/Resolved]
  - Skin erosion [Recovered/Resolved]
